FAERS Safety Report 5151397-9 (Version None)
Quarter: 2006Q4

REPORT INFORMATION
  Report Type: 
  Country: None (occurrence: None)
  Receive Date: 20061110
  Receipt Date: 20061110
  Transmission Date: 20070319
  Serious: Yes (Other)
  Sender: FDA-Public Use
  Company Number: None

PATIENT
  Age: 81 Year
  Sex: Female
  Weight: 78.1 kg

DRUGS (20)
  1. BYETTA [Suspect]
     Indication: INSULIN-REQUIRING TYPE II DIABETES MELLITUS
     Dosage: 5 MCG EVERY EVENING SQ
     Route: 058
     Dates: start: 20061019, end: 20061026
  2. ISORDIL [Concomitant]
  3. AVANDIA [Concomitant]
  4. MULTI-VITAMIN [Concomitant]
  5. LASIX [Concomitant]
  6. SYNTHROID [Concomitant]
  7. SPIRONOLACTONE [Concomitant]
  8. NOVOLOG SLIDING SCALE [Concomitant]
  9. CALCIUM W/ VITAMIN D [Concomitant]
  10. FOSAMAX [Concomitant]
  11. TRAZODONE HCL [Concomitant]
  12. LANTUS [Concomitant]
  13. ASPIRIN [Concomitant]
  14. ENALAPRIL MALEATE [Concomitant]
  15. POTASSIUM CHLORIDE [Concomitant]
  16. OMACOR [Concomitant]
  17. ZOCOR [Concomitant]
  18. BUPROPION HCL [Concomitant]
  19. PROMETHAZINE [Concomitant]
  20. LEXAPRO [Concomitant]

REACTIONS (7)
  - DIARRHOEA [None]
  - DYSPEPSIA [None]
  - HEADACHE [None]
  - MUSCLE SPASMS [None]
  - NAUSEA [None]
  - RETCHING [None]
  - VOMITING PROJECTILE [None]
